FAERS Safety Report 8244007-5 (Version None)
Quarter: 2012Q1

REPORT INFORMATION
  Report Type: 
  Country: None (occurrence: None)
  Receive Date: 20120329
  Receipt Date: 20120322
  Transmission Date: 20120608
  Serious: Yes (Other)
  Sender: FDA-Public Use
  Company Number: US-US-EMD SERONO, INC.-7121113

PATIENT
  Sex: Female

DRUGS (1)
  1. REBIF [Suspect]
     Indication: MULTIPLE SCLEROSIS
     Route: 058
     Dates: start: 20110321

REACTIONS (4)
  - HYPOAESTHESIA [None]
  - DEPRESSION [None]
  - DIABETES MELLITUS [None]
  - MUSCULOSKELETAL CHEST PAIN [None]
